FAERS Safety Report 23321217 (Version 2)
Quarter: 2023Q4

REPORT INFORMATION
  Report Type: Spontaneous
  Country: CA (occurrence: CA)
  Receive Date: 20231220
  Receipt Date: 20231227
  Transmission Date: 20240110
  Serious: Yes (Life-Threatening)
  Sender: FDA-Public Use
  Company Number: CA-PFIZER INC-PV202300198180

PATIENT
  Age: 80 Year
  Sex: Female
  Weight: 52.4 kg

DRUGS (1)
  1. ZIRABEV [Suspect]
     Active Substance: BEVACIZUMAB-BVZR
     Indication: Ovarian cancer
     Dosage: 7.5 MG/KG, Q 3 WEEKS WITH 6 REPEATS REASSESS

REACTIONS (3)
  - Ascites [Unknown]
  - Pleural effusion [Unknown]
  - Off label use [Unknown]
